FAERS Safety Report 9563639 (Version 1)
Quarter: 2013Q3

REPORT INFORMATION
  Report Type: Spontaneous
  Country: US (occurrence: None)
  Receive Date: 20130926
  Receipt Date: 20130926
  Transmission Date: 20140515
  Serious: Yes (Hospitalization)
  Sender: FDA-Public Use
  Company Number: None

PATIENT
  Age: 83 Year
  Sex: Male
  Weight: 78.7 kg

DRUGS (1)
  1. ASPIRIN [Suspect]
     Indication: CEREBROVASCULAR ACCIDENT
     Route: 048
     Dates: start: 20121026, end: 20130820

REACTIONS (4)
  - Haematochezia [None]
  - Gastric haemorrhage [None]
  - Upper gastrointestinal haemorrhage [None]
  - Lower gastrointestinal haemorrhage [None]
